FAERS Safety Report 9700930 (Version 1)
Quarter: 2013Q4

REPORT INFORMATION
  Report Type: Report from Study
  Country: US (occurrence: US)
  Receive Date: 20131121
  Receipt Date: 20131121
  Transmission Date: 20140711
  Serious: Yes (Hospitalization)
  Sender: FDA-Public Use
  Company Number: US-ASTELLAS-2013US012123

PATIENT
  Age: 57 Year
  Sex: Male

DRUGS (5)
  1. ERLOTINIB TABLET [Suspect]
     Indication: SQUAMOUS CELL CARCINOMA OF LUNG
     Dosage: 150 MG, UNKNOWN/D
     Route: 048
     Dates: start: 201310, end: 20131028
  2. ERLOTINIB TABLET [Suspect]
     Dosage: 100 MG, UNKNOWN/D
     Route: 048
     Dates: start: 201309, end: 201310
  3. MORPHINE                           /00036302/ [Concomitant]
     Indication: PRODUCT USED FOR UNKNOWN INDICATION
     Dosage: UNK
     Route: 065
  4. DILAUDID [Concomitant]
     Indication: PRODUCT USED FOR UNKNOWN INDICATION
     Dosage: UNK
     Route: 065
  5. CYMBALTA [Concomitant]
     Indication: PRODUCT USED FOR UNKNOWN INDICATION
     Dosage: UNK
     Route: 065

REACTIONS (5)
  - Incorrect dose administered [Unknown]
  - Dehydration [Recovered/Resolved]
  - Pyrexia [Recovered/Resolved]
  - Rash erythematous [Recovering/Resolving]
  - Dry skin [Unknown]
